FAERS Safety Report 16771594 (Version 2)
Quarter: 2019Q3

REPORT INFORMATION
  Report Type: Spontaneous
  Country: JP (occurrence: JP)
  Receive Date: 20190904
  Receipt Date: 20190920
  Transmission Date: 20191005
  Serious: Yes (Hospitalization)
  Sender: FDA-Public Use
  Company Number: JP-FERRINGPH-2019FE05427

PATIENT
  Age: 32 Year
  Sex: Female

DRUGS (2)
  1. MENOGON [Suspect]
     Active Substance: MENOTROPINS
     Indication: PRODUCT USED FOR UNKNOWN INDICATION
     Dosage: UNK
     Route: 065
  2. HCG [Concomitant]
     Active Substance: GONADOTROPHIN, CHORIONIC
     Dosage: UNK
     Route: 065

REACTIONS (2)
  - Hyperreactio luteinalis [Recovered/Resolved]
  - Ovarian cyst torsion [Recovered/Resolved]
